FAERS Safety Report 7180075-X (Version None)
Quarter: 2010Q4

REPORT INFORMATION
  Report Type: 
  Country: None (occurrence: None)
  Receive Date: 20101208
  Receipt Date: 20101122
  Transmission Date: 20110411
  Serious: Yes (Disabling, Other)
  Sender: FDA-Public Use
  Company Number: ALA_01059_2010

PATIENT
  Sex: Female
  Weight: 61.2356 kg

DRUGS (7)
  1. REGLAN [Suspect]
     Indication: NAUSEA
     Dosage: (10 MG QID ORAL)
     Route: 048
     Dates: start: 20060101
  2. CYMBALTA [Concomitant]
  3. XANAX [Concomitant]
  4. LYRICA [Concomitant]
  5. DEPAKOTE [Concomitant]
  6. TOPAMAX [Concomitant]
  7. ULTRAM [Concomitant]

REACTIONS (71)
  - ALCOHOL USE [None]
  - ALOPECIA [None]
  - ANXIETY [None]
  - ARTHRALGIA [None]
  - ASTHENIA [None]
  - BACTERIAL TEST POSITIVE [None]
  - BALANCE DISORDER [None]
  - BLOOD CHLORIDE INCREASED [None]
  - BLOOD CHOLESTEROL INCREASED [None]
  - BLOOD POTASSIUM DECREASED [None]
  - BLOOD PRESSURE DECREASED [None]
  - BLOOD SODIUM INCREASED [None]
  - BLOOD TRIGLYCERIDES INCREASED [None]
  - CARBON DIOXIDE DECREASED [None]
  - CARBON DIOXIDE INCREASED [None]
  - CARDIAC STRESS TEST ABNORMAL [None]
  - CARNITINE PALMITOYLTRANSFERASE DEFICIENCY [None]
  - CHEST DISCOMFORT [None]
  - CHEST PAIN [None]
  - COUGH [None]
  - DECREASED APPETITE [None]
  - DILATATION VENTRICULAR [None]
  - DIZZINESS [None]
  - DYSPNOEA [None]
  - ELECTROCARDIOGRAM ABNORMAL [None]
  - EOSINOPHIL PERCENTAGE INCREASED [None]
  - ESCHERICHIA URINARY TRACT INFECTION [None]
  - EXERCISE TOLERANCE DECREASED [None]
  - EYELID PTOSIS [None]
  - FATIGUE [None]
  - GASTRITIS [None]
  - GLAUCOMA [None]
  - HAEMATOCRIT DECREASED [None]
  - HEART RATE INCREASED [None]
  - HIGH DENSITY LIPOPROTEIN DECREASED [None]
  - HYPOAESTHESIA [None]
  - HYPOPHAGIA [None]
  - INCISION SITE CELLULITIS [None]
  - INSOMNIA [None]
  - INTERVERTEBRAL DISC PROTRUSION [None]
  - IRRITABILITY [None]
  - LEFT ATRIAL DILATATION [None]
  - LOSS OF CONSCIOUSNESS [None]
  - LOW DENSITY LIPOPROTEIN INCREASED [None]
  - MEAN PLATELET VOLUME DECREASED [None]
  - MYALGIA [None]
  - NAUSEA [None]
  - NEUROPATHY PERIPHERAL [None]
  - NEUTROPHIL COUNT INCREASED [None]
  - NICOTINE DEPENDENCE [None]
  - OEDEMA PERIPHERAL [None]
  - OROMANDIBULAR DYSTONIA [None]
  - OXYGEN SATURATION DECREASED [None]
  - PAIN [None]
  - PAIN IN EXTREMITY [None]
  - PALPITATIONS [None]
  - PARAESTHESIA [None]
  - POSTURE ABNORMAL [None]
  - PROTEIN TOTAL DECREASED [None]
  - RASH PRURITIC [None]
  - RED BLOOD CELL COUNT DECREASED [None]
  - RED BLOOD CELL SEDIMENTATION RATE INCREASED [None]
  - SINUS BRADYCARDIA [None]
  - TENDONITIS [None]
  - TENSION [None]
  - TREATMENT NONCOMPLIANCE [None]
  - UNRESPONSIVE TO STIMULI [None]
  - URINARY INCONTINENCE [None]
  - VISION BLURRED [None]
  - VOMITING [None]
  - WHITE BLOOD CELL COUNT INCREASED [None]
